FAERS Safety Report 6924599-6 (Version None)
Quarter: 2010Q3

REPORT INFORMATION
  Report Type: 
  Country: None (occurrence: None)
  Receive Date: 20100811
  Receipt Date: 20100729
  Transmission Date: 20110219
  Serious: Yes (Hospitalization)
  Sender: FDA-Public Use
  Company Number: DSJ-2010-12652

PATIENT
  Age: 77 Year
  Sex: Male

DRUGS (7)
  1. OLMESARTAN MEDOXOMIL [Suspect]
     Indication: ESSENTIAL HYPERTENSION
     Dosage: 10 MG (10 MG, 1 IN 1 D), PER ORAL
     Route: 048
     Dates: start: 20100313
  2. LEVEMIR300 X NOVOLIN R300 [INGREDIENT UNKNOWN] (INJECTION) [Concomitant]
  3. LIVALO (ITAVASTATIN CALCIUM) (ITAVASTATIN CALCIUM) [Concomitant]
  4. BASEN (VOGLIBOSE) (VOGLIBOSE) [Concomitant]
  5. ALLOPURINOL [Concomitant]
  6. PURSENNID (SENNA ALEXANDRINA LEAF) (SENNA ALEXANDRINA LEAF) [Concomitant]
  7. ATELEC (CILNIDIPINE) (CILNIDIPINE) [Concomitant]

REACTIONS (2)
  - CEREBRAL INFARCTION [None]
  - PNEUMONIA ASPIRATION [None]
